FAERS Safety Report 10193331 (Version 1)
Quarter: 2014Q2

REPORT INFORMATION
  Report Type: Spontaneous
  Country: US (occurrence: US)
  Receive Date: 20140524
  Receipt Date: 20140524
  Transmission Date: 20141212
  Serious: No
  Sender: FDA-Public Use
  Company Number: US-SA-2014SA013488

PATIENT
  Age: 50 Year
  Sex: Female

DRUGS (2)
  1. LANTUS SOLOSTAR [Suspect]
     Indication: DIABETES MELLITUS
     Dosage: TAKEN FROM: 15 YEARS AGO DOSE:20 UNIT(S)
     Route: 051
  2. SOLOSTAR [Concomitant]

REACTIONS (4)
  - Blood pressure abnormal [Unknown]
  - Malaise [Unknown]
  - Blood glucose increased [Unknown]
  - Drug dose omission [Unknown]
